FAERS Safety Report 8829594 (Version 2)
Quarter: 2012Q4

REPORT INFORMATION
  Report Type: 
  Country: US (occurrence: US)
  Receive Date: 20121008
  Receipt Date: 20121119
  Transmission Date: 20130627
  Serious: Yes (Hospitalization)
  Sender: FDA-Public Use
  Company Number: US-BAYER-2012-104180

PATIENT
  Age: 15 Year
  Sex: Female
  Weight: 102.4 kg

DRUGS (1)
  1. YAZ [Suspect]
     Dosage: UNK
     Dates: start: 20090724, end: 20091124

REACTIONS (13)
  - Cholecystectomy [None]
  - Pain [None]
  - Injury [None]
  - General physical health deterioration [None]
  - Emotional distress [None]
  - Anhedonia [None]
  - Anxiety [None]
  - Pain [None]
  - Malaise [None]
  - Pyrexia [None]
  - Hypertension [None]
  - Abdominal pain upper [None]
  - Mental disorder [None]
